FAERS Safety Report 14454895 (Version 2)
Quarter: 2018Q2

REPORT INFORMATION
  Report Type: Spontaneous
  Country: US (occurrence: US)
  Receive Date: 20180129
  Receipt Date: 20180611
  Transmission Date: 20180711
  Serious: Yes (Other)
  Sender: FDA-Public Use
  Company Number: US-DSJP-DSU-2017-145637

PATIENT

DRUGS (2)
  1. BENICAR [Suspect]
     Active Substance: OLMESARTAN MEDOXOMIL
     Indication: PRODUCT USED FOR UNKNOWN INDICATION
     Dosage: 40 MG, QD
     Route: 048
     Dates: start: 20080529
  2. BENICAR [Suspect]
     Active Substance: OLMESARTAN MEDOXOMIL
     Dosage: 20 MG, QD
     Route: 048
     Dates: end: 20110812

REACTIONS (8)
  - Constipation [Unknown]
  - Duodenal ulcer [Not Recovered/Not Resolved]
  - Gastritis erosive [Unknown]
  - Syncope [Unknown]
  - Oesophagitis [Unknown]
  - Sprue-like enteropathy [Recovering/Resolving]
  - Gastric ulcer [Unknown]
  - Helicobacter test positive [Not Recovered/Not Resolved]

NARRATIVE: CASE EVENT DATE: 20081030
